FAERS Safety Report 8342741-X (Version None)
Quarter: 2012Q2

REPORT INFORMATION
  Report Type: 
  Country: None (occurrence: None)
  Receive Date: 20120503
  Receipt Date: 20120420
  Transmission Date: 20120825
  Serious: Yes (Other)
  Sender: FDA-Public Use
  Company Number: 2012MA005257

PATIENT
  Age: 36 Year
  Sex: Female

DRUGS (9)
  1. VENLAFAXINE [Concomitant]
  2. LAMOTRIGINE [Concomitant]
  3. FEVERALL [Suspect]
     Indication: URINARY TRACT INFECTION
  4. BUPROPION HCL [Concomitant]
  5. LITHIUM CARBONATE [Concomitant]
  6. ONDANSETRON [Concomitant]
  7. LOXAPINE [Concomitant]
  8. CIPROFLOXACIN [Concomitant]
  9. SERTRALINE HYDROCHLORIDE [Concomitant]

REACTIONS (7)
  - ALANINE AMINOTRANSFERASE INCREASED [None]
  - HEADACHE [None]
  - VOMITING [None]
  - ASPARTATE AMINOTRANSFERASE INCREASED [None]
  - NAUSEA [None]
  - NEUROLEPTIC MALIGNANT SYNDROME [None]
  - DIARRHOEA [None]
